FAERS Safety Report 6177016-0 (Version None)
Quarter: 2009Q2

REPORT INFORMATION
  Report Type: 
  Country: None (occurrence: None)
  Receive Date: 20090501
  Receipt Date: 20090305
  Transmission Date: 20091009
  Serious: Yes (Hospitalization)
  Sender: FDA-Public Use
  Company Number: US-ALEXION-A200900166

PATIENT
  Sex: Female

DRUGS (10)
  1. SOLIRIS [Suspect]
     Indication: PAROXYSMAL NOCTURNAL HAEMOGLOBINURIA
     Dosage: 600 MG, QWK
     Route: 042
     Dates: start: 20071009, end: 20071030
  2. SOLIRIS [Suspect]
     Dosage: 900 MG
     Route: 042
     Dates: start: 20071106
  3. CYCLOSPORINE [Concomitant]
     Indication: BONE MARROW CONDITIONING REGIMEN
     Dosage: UNK
     Dates: start: 20080801, end: 20081001
  4. PRENATAL VITAMINS                  /01549301/ [Concomitant]
     Indication: VITAMIN SUPPLEMENTATION
     Dosage: UNK
     Route: 048
  5. BENADRYL [Concomitant]
     Indication: INSOMNIA
     Dosage: 25 MG, PRN
     Route: 048
  6. AMOXICILLIN [Concomitant]
     Indication: INFECTION PROPHYLAXIS
     Dosage: 500 MG, BID
     Route: 048
  7. IBUPROFEN [Concomitant]
     Indication: TOOTHACHE
     Dosage: 600 MG, Q6H
  8. VITAMIN C                          /00008001/ [Concomitant]
     Dosage: UNK
     Route: 048
  9. PRILOSEC [Concomitant]
     Dosage: UNK
     Route: 048
  10. NEULASTA [Concomitant]
     Dosage: UNK

REACTIONS (4)
  - HAEMOGLOBIN DECREASED [None]
  - NEUTROPHIL COUNT DECREASED [None]
  - WHITE BLOOD CELL COUNT DECREASED [None]
  - WISDOM TEETH REMOVAL [None]
